FAERS Safety Report 5503179-3 (Version None)
Quarter: 2007Q4

REPORT INFORMATION
  Report Type: 
  Country: None (occurrence: None)
  Receive Date: 20071031
  Receipt Date: 20071019
  Transmission Date: 20080405
  Serious: Yes (Hospitalization)
  Sender: FDA-Public Use
  Company Number: US-AMGEN-STX248913

PATIENT
  Sex: Female
  Weight: 110.8 kg

DRUGS (4)
  1. ENBREL [Suspect]
     Indication: PSORIASIS
     Route: 058
     Dates: start: 20070905
  2. ENBREL [Suspect]
     Indication: PSORIATIC ARTHROPATHY
  3. METHOTREXATE [Concomitant]
     Route: 065
     Dates: start: 20050101
  4. UNSPECIFIED PAIN MEDICATION [Concomitant]
     Route: 065

REACTIONS (5)
  - ACCIDENTAL OVERDOSE [None]
  - HYPOVENTILATION [None]
  - INJECTION SITE PAIN [None]
  - OXYGEN SATURATION DECREASED [None]
  - UNRESPONSIVE TO STIMULI [None]
